FAERS Safety Report 11815096 (Version 1)
Quarter: 2015Q4

REPORT INFORMATION
  Report Type: Spontaneous
  Country: US (occurrence: US)
  Receive Date: 20151209
  Receipt Date: 20151209
  Transmission Date: 20160305
  Serious: No
  Sender: FDA-Public Use
  Company Number: US-SA-2015SA166401

PATIENT
  Age: 63 Year
  Sex: Female

DRUGS (4)
  1. AFREZZA [Suspect]
     Active Substance: INSULIN HUMAN
     Indication: TYPE 1 DIABETES MELLITUS
     Dosage: 2 DOSES OF AFREZZA TODAY DOSE:4 UNIT(S)
     Route: 065
     Dates: start: 20151016
  2. TOUJEO [Suspect]
     Active Substance: INSULIN GLARGINE
     Dosage: SLIDING SCALE DOSE:18 UNIT(S)
     Route: 065
     Dates: start: 20151016
  3. TOUJEO [Suspect]
     Active Substance: INSULIN GLARGINE
     Dosage: DOSE:24 UNIT(S)
     Route: 065
  4. SOLOSTAR [Concomitant]
     Active Substance: DEVICE

REACTIONS (2)
  - Swelling face [Recovered/Resolved]
  - Blood glucose increased [Recovered/Resolved]

NARRATIVE: CASE EVENT DATE: 20151110
